FAERS Safety Report 5806192-1 (Version None)
Quarter: 2008Q3

REPORT INFORMATION
  Report Type: 
  Country: None (occurrence: None)
  Receive Date: 20080710
  Receipt Date: 20080703
  Transmission Date: 20090109
  Serious: Yes (Hospitalization)
  Sender: FDA-Public Use
  Company Number: SE-ASTRAZENECA-2008SE03328

PATIENT
  Age: 30874 Day
  Sex: Female

DRUGS (12)
  1. ATACAND [Suspect]
     Indication: CARDIAC FAILURE
     Route: 048
     Dates: start: 20070904, end: 20071005
  2. ATACAND [Suspect]
     Route: 048
     Dates: start: 20071006, end: 20071220
  3. ATACAND [Suspect]
     Route: 048
     Dates: start: 20071221
  4. ASPIRIN [Concomitant]
     Indication: CEREBROVASCULAR ACCIDENT
     Route: 048
  5. DUROFERON [Concomitant]
     Indication: ANAEMIA
     Route: 048
  6. PANTOPRAZOLE SODIUM [Concomitant]
     Indication: HAEMATEMESIS
     Route: 048
  7. SIMVASTATIN [Concomitant]
     Indication: HYPERLIPIDAEMIA
     Route: 048
  8. CITALOPRAM HYDROBROMIDE [Concomitant]
     Indication: DEPRESSION
     Route: 048
  9. ATROVENT [Concomitant]
     Indication: CHRONIC OBSTRUCTIVE PULMONARY DISEASE
     Route: 055
  10. ORSTANORM [Concomitant]
     Indication: HYPOTENSION
     Route: 048
  11. ZOPICLONE [Concomitant]
     Indication: INSOMNIA
     Route: 048
  12. ACETYLCYSTEINE [Concomitant]
     Indication: MUCOUS MEMBRANE DISORDER
     Route: 048

REACTIONS (1)
  - BLOOD PRESSURE DECREASED [None]
